FAERS Safety Report 4851107-6 (Version None)
Quarter: 2005Q4

REPORT INFORMATION
  Report Type: 
  Country: None (occurrence: None)
  Receive Date: 20051208
  Receipt Date: 20051121
  Transmission Date: 20060501
  Serious: Yes (Hospitalization)
  Sender: FDA-Public Use
  Company Number: DSA_27457_2005

PATIENT
  Age: 19 Year
  Sex: Female

DRUGS (4)
  1. TAVOR [Suspect]
     Dosage: 10 MG ONCE PO
     Route: 048
     Dates: start: 20051121, end: 20051121
  2. MIRTAZAPINE [Suspect]
     Dosage: 450 MG ONCE PO
     Route: 048
     Dates: start: 20051121, end: 20051121
  3. ZOPICLONE [Suspect]
     Dosage: 150 MG ONCE PO
     Route: 048
     Dates: start: 20051121, end: 20051121
  4. ALCOHOL [Suspect]
     Dosage: DF UNK PO
     Route: 048
     Dates: start: 20051121, end: 20051121

REACTIONS (4)
  - MIOSIS [None]
  - MULTIPLE DRUG OVERDOSE INTENTIONAL [None]
  - SOPOR [None]
  - SUICIDE ATTEMPT [None]
